FAERS Safety Report 9603514 (Version 1)
Quarter: 2013Q4

REPORT INFORMATION
  Report Type: Spontaneous
  Country: US (occurrence: US)
  Receive Date: 20131007
  Receipt Date: 20131007
  Transmission Date: 20140711
  Serious: No
  Sender: FDA-Public Use
  Company Number: US-009507513-1310USA000452

PATIENT
  Sex: Female

DRUGS (2)
  1. SAPHRIS [Suspect]
     Dosage: 10 MG, BID
     Route: 060
  2. SAPHRIS [Suspect]
     Dosage: 5 MG, BID
     Route: 060

REACTIONS (2)
  - Parkinson^s disease [Recovered/Resolved]
  - Pneumonia [Recovered/Resolved]
